FAERS Safety Report 13664904 (Version 31)
Quarter: 2022Q2

REPORT INFORMATION
  Report Type: Report from Study
  Country: CA (occurrence: CA)
  Receive Date: 20170619
  Receipt Date: 20220407
  Transmission Date: 20220720
  Serious: Yes (Hospitalization, Other)
  Sender: FDA-Public Use
  Company Number: PHHY2016CA082881

PATIENT
  Age: 60 Year
  Sex: Female

DRUGS (4)
  1. SANDOSTATIN LAR DEPOT [Suspect]
     Active Substance: OCTREOTIDE ACETATE
     Indication: Carcinoid tumour
     Dosage: 20 MG, Q4W
     Route: 030
     Dates: start: 20160405
  2. SANDOSTATIN LAR DEPOT [Suspect]
     Active Substance: OCTREOTIDE ACETATE
     Dosage: 30 MG, Q4W
     Route: 030
  3. SANDOSTATIN LAR DEPOT [Suspect]
     Active Substance: OCTREOTIDE ACETATE
     Dosage: 30 MG
     Route: 030
     Dates: start: 20210416
  4. SANDOSTATIN LAR DEPOT [Suspect]
     Active Substance: OCTREOTIDE ACETATE
     Dosage: 20 MG, Q4W
     Route: 030

REACTIONS (43)
  - Back pain [Unknown]
  - Seizure [Unknown]
  - Blood pressure increased [Unknown]
  - Diabetes mellitus [Unknown]
  - Mastitis [Unknown]
  - Breast swelling [Unknown]
  - Brain neoplasm [Unknown]
  - Pain in extremity [Unknown]
  - Gait disturbance [Unknown]
  - Malaise [Unknown]
  - Fall [Unknown]
  - Eyelid ptosis [Not Recovered/Not Resolved]
  - Illness [Unknown]
  - Gastroenteritis viral [Unknown]
  - Arthralgia [Not Recovered/Not Resolved]
  - Anxiety [Unknown]
  - Ocular discomfort [Unknown]
  - Nightmare [Unknown]
  - Neoplasm [Unknown]
  - Cerebral disorder [Unknown]
  - Swelling of eyelid [Unknown]
  - Eye pain [Not Recovered/Not Resolved]
  - Pain in jaw [Not Recovered/Not Resolved]
  - Dysstasia [Unknown]
  - Joint stiffness [Unknown]
  - Joint swelling [Unknown]
  - Stroke-like migraine attacks after radiation therapy [Unknown]
  - Myalgia [Unknown]
  - Pain [Unknown]
  - Depressed mood [Unknown]
  - Urinary incontinence [Recovering/Resolving]
  - Somnolence [Unknown]
  - Neuralgia [Unknown]
  - Skin disorder [Unknown]
  - Peripheral swelling [Unknown]
  - Diarrhoea [Unknown]
  - Vomiting [Unknown]
  - Dizziness [Unknown]
  - Headache [Not Recovered/Not Resolved]
  - Fatigue [Unknown]
  - Dyspnoea [Unknown]
  - Injection site pain [Unknown]
  - Product storage error [Unknown]

NARRATIVE: CASE EVENT DATE: 20160609
